FAERS Safety Report 13193759 (Version 2)
Quarter: 2017Q1

REPORT INFORMATION
  Report Type: Spontaneous
  Country: NL (occurrence: NL)
  Receive Date: 20170207
  Receipt Date: 20170315
  Transmission Date: 20170428
  Serious: Yes (Death)
  Sender: FDA-Public Use
  Company Number: NL-OTSUKA-2017_002702

PATIENT
  Age: 44 Year
  Sex: Male

DRUGS (1)
  1. ABILIFY MAINTENA [Suspect]
     Active Substance: ARIPIPRAZOLE
     Indication: SCHIZOPHRENIA
     Dosage: 400 MG, UNK
     Route: 065
     Dates: start: 201612, end: 201701

REACTIONS (4)
  - Psychotic disorder [Unknown]
  - Treatment noncompliance [Unknown]
  - Poisoning [Fatal]
  - Anger [Recovered/Resolved]

NARRATIVE: CASE EVENT DATE: 201612
